FAERS Safety Report 7990765-4 (Version None)
Quarter: 2011Q4

REPORT INFORMATION
  Report Type: 
  Country: None (occurrence: None)
  Receive Date: 20111219
  Receipt Date: 20111219
  Transmission Date: 20120403
  Serious: Yes (Life-Threatening, Hospitalization)
  Sender: FDA-Public Use
  Company Number: None

PATIENT
  Age: 71 Year
  Sex: Male
  Weight: 98.429 kg

DRUGS (1)
  1. THIOTHIXENE [Suspect]
     Indication: ANXIETY
     Dosage: ONE CAPSULE
     Dates: start: 20111206, end: 20111216

REACTIONS (9)
  - EYE PAIN [None]
  - BACK PAIN [None]
  - MOVEMENT DISORDER [None]
  - PAIN IN EXTREMITY [None]
  - GAIT DISTURBANCE [None]
  - VISUAL IMPAIRMENT [None]
  - MUSCLE RIGIDITY [None]
  - RESTLESSNESS [None]
  - ACTIVITIES OF DAILY LIVING IMPAIRED [None]
